FAERS Safety Report 10496941 (Version 1)
Quarter: 2014Q4

REPORT INFORMATION
  Report Type: Spontaneous
  Country: US (occurrence: US)
  Receive Date: 20141006
  Receipt Date: 20141006
  Transmission Date: 20150528
  Serious: No
  Sender: FDA-Public Use
  Company Number: US-ELI_LILLY_AND_COMPANY-US201409001973

PATIENT

DRUGS (1)
  1. FLORBETAPIR [Suspect]
     Active Substance: FLORBETAPIR
     Indication: PRODUCT USED FOR UNKNOWN INDICATION
     Dosage: 9.93 MCI, UNKNOWN
     Route: 065

REACTIONS (1)
  - Product distribution issue [Unknown]

NARRATIVE: CASE EVENT DATE: 20140902
